FAERS Safety Report 13881624 (Version 2)
Quarter: 2017Q3

REPORT INFORMATION
  Report Type: Report from Study
  Country: US (occurrence: US)
  Receive Date: 20170818
  Receipt Date: 20170905
  Transmission Date: 20171127
  Serious: No
  Sender: FDA-Public Use
  Company Number: PHEH2017US026264

PATIENT
  Age: 46 Year

DRUGS (1)
  1. GILENYA [Suspect]
     Active Substance: FINGOLIMOD HYDROCHLORIDE
     Indication: PRODUCT USED FOR UNKNOWN INDICATION
     Dosage: 0.5 MG, QD
     Route: 048
     Dates: start: 20170804

REACTIONS (11)
  - Fatigue [Unknown]
  - Hypoaesthesia [Unknown]
  - Abdominal pain upper [Unknown]
  - Vomiting [Unknown]
  - Decreased appetite [Unknown]
  - Influenza like illness [Unknown]
  - Headache [Unknown]
  - Back pain [Unknown]
  - Nausea [Unknown]
  - Diarrhoea [Unknown]
  - Cough [Unknown]

NARRATIVE: CASE EVENT DATE: 20170807
